FAERS Safety Report 23492395 (Version 3)
Quarter: 2024Q2

REPORT INFORMATION
  Report Type: Spontaneous
  Country: AU (occurrence: AU)
  Receive Date: 20240207
  Receipt Date: 20240626
  Transmission Date: 20240715
  Serious: Yes (Other)
  Sender: FDA-Public Use
  Company Number: AU-ASTELLAS-2024US003393

PATIENT
  Age: 71 Year
  Sex: Male

DRUGS (3)
  1. ENZALUTAMIDE [Interacting]
     Active Substance: ENZALUTAMIDE
     Indication: Hormone-refractory prostate cancer
     Route: 048
     Dates: start: 20231027
  2. TALZENNA [Interacting]
     Active Substance: TALAZOPARIB TOSYLATE
     Indication: Hormone-refractory prostate cancer
     Dosage: 0.5 MG, ONCE DAILY
     Route: 048
     Dates: start: 20231027
  3. TALZENNA [Interacting]
     Active Substance: TALAZOPARIB TOSYLATE
     Dosage: UNK UNK, UNKNOWN FREQ. (DOSE DECREASED)
     Route: 048
     Dates: end: 20240402

REACTIONS (2)
  - Anaemia [Recovered/Resolved]
  - Drug interaction [Unknown]

NARRATIVE: CASE EVENT DATE: 20240108
